FAERS Safety Report 6805724-4 (Version None)
Quarter: 2010Q2

REPORT INFORMATION
  Report Type: 
  Country: None (occurrence: None)
  Receive Date: 20100628
  Receipt Date: 20081110
  Transmission Date: 20101027
  Serious: Yes (Other)
  Sender: FDA-Public Use
  Company Number: US-PFIZER INC-2008064462

PATIENT
  Sex: Male

DRUGS (1)
  1. SUTENT [Suspect]
     Indication: RENAL CELL CARCINOMA

REACTIONS (5)
  - DISEASE PROGRESSION [None]
  - MALIGNANT TUMOUR EXCISION [None]
  - NEOPLASM MALIGNANT [None]
  - PROSTATE CANCER [None]
  - RENAL CELL CARCINOMA [None]
